FAERS Safety Report 14888722 (Version 1)
Quarter: 2018Q2

REPORT INFORMATION
  Report Type: Spontaneous
  Country: US (occurrence: US)
  Receive Date: 20180514
  Receipt Date: 20180514
  Transmission Date: 20180711
  Serious: No
  Sender: FDA-Public Use
  Company Number: US-ASTRAZENECA-2018SE52065

PATIENT
  Sex: Male

DRUGS (12)
  1. TAGRISSO [Suspect]
     Active Substance: OSIMERTINIB
     Indication: LUNG NEOPLASM MALIGNANT
     Route: 048
     Dates: start: 20180412
  2. TAMSULOSIN HYDROCHLORIDE. [Concomitant]
     Active Substance: TAMSULOSIN HYDROCHLORIDE
  3. MULTIVITAMIN [Concomitant]
     Active Substance: VITAMINS
  4. SODIUM CHLORIDE. [Concomitant]
     Active Substance: SODIUM CHLORIDE
  5. XGEVA [Concomitant]
     Active Substance: DENOSUMAB
     Dosage: 600+D3 600-800 MG-UNIT
  6. FLAX OIL [Concomitant]
  7. FISH OIL [Concomitant]
     Active Substance: FISH OIL
  8. VITAMIN C [Concomitant]
     Active Substance: ASCORBIC ACID
  9. TYLENOL [Concomitant]
     Active Substance: ACETAMINOPHEN
     Dosage: 600+D3 600-800 MG-UNIT
  10. VALACICLOVIR HYDROCHLORIDE [Concomitant]
     Active Substance: VALACYCLOVIR HYDROCHLORIDE
  11. BORAGE OIL [Concomitant]
     Active Substance: BORAGE OIL
  12. CALCIUM [Concomitant]
     Active Substance: CALCIUM
     Dosage: 600+D3 600-800 MG-UNIT

REACTIONS (8)
  - Chest discomfort [Recovering/Resolving]
  - Pleural effusion [Recovering/Resolving]
  - Fatigue [Recovering/Resolving]
  - Dyspnoea [Recovering/Resolving]
  - Diarrhoea [Recovering/Resolving]
  - Dry skin [Recovering/Resolving]
  - Dry eye [Recovering/Resolving]
  - Weight decreased [Recovering/Resolving]
